FAERS Safety Report 8472849-X (Version None)
Quarter: 2012Q2

REPORT INFORMATION
  Report Type: 
  Country: None (occurrence: None)
  Receive Date: 20120627
  Receipt Date: 20120625
  Transmission Date: 20120825
  Serious: Yes (Other)
  Sender: FDA-Public Use
  Company Number: US-PFIZER INC-2012092802

PATIENT
  Sex: Female
  Weight: 49.9 kg

DRUGS (2)
  1. MOBIC [Suspect]
     Indication: ARTHRALGIA
     Dosage: UNK
  2. CELEBREX [Suspect]
     Indication: ARTHRALGIA
     Dosage: UNK
     Dates: end: 20020101

REACTIONS (1)
  - ARTHRITIS [None]
